FAERS Safety Report 7637183-6 (Version None)
Quarter: 2011Q3

REPORT INFORMATION
  Report Type: 
  Country: None (occurrence: None)
  Receive Date: 20110726
  Receipt Date: 20110712
  Transmission Date: 20111222
  Serious: Yes (Hospitalization)
  Sender: FDA-Public Use
  Company Number: PHHY2011KR62661

PATIENT

DRUGS (9)
  1. ASPIRIN [Concomitant]
     Dosage: UNK UKN, UNK
  2. LIPITOR [Concomitant]
     Dosage: 10 MG, UNK
  3. ISOSORBIDE MONONITRATE [Concomitant]
     Dosage: UNK UKN, UNK
  4. CARBAMAZEPINE [Suspect]
     Dosage: UNK UKN, UNK
  5. ADALAT [Concomitant]
     Dosage: UNK UKN, UNK
  6. CARDURA [Concomitant]
     Dosage: 4 MG, UNK
  7. KREMEZIN [Concomitant]
     Dosage: UNK UKN, UNK
  8. AMARYL [Concomitant]
     Dosage: 2 MG, UNK
  9. SIGMART [Concomitant]
     Dosage: UNK UKN, UNK

REACTIONS (3)
  - CELLULITIS [None]
  - PYREXIA [None]
  - ASTHENIA [None]
